FAERS Safety Report 12113901 (Version 1)
Quarter: 2016Q1

REPORT INFORMATION
  Report Type: Spontaneous
  Country: US (occurrence: US)
  Receive Date: 20160225
  Receipt Date: 20160225
  Transmission Date: 20160526
  Serious: No
  Sender: FDA-Public Use
  Company Number: US-BAYER-2016-036940

PATIENT
  Age: 60 Year
  Sex: Female
  Weight: 63.49 kg

DRUGS (4)
  1. CLARITIN [Suspect]
     Active Substance: LORATADINE
     Indication: URTICARIA
  2. CLARITIN [Suspect]
     Active Substance: LORATADINE
     Indication: URTICARIA
  3. CLARITIN [Suspect]
     Active Substance: LORATADINE
     Indication: PRURITUS
     Dosage: 1 DF, QD
     Route: 048
  4. CLARITIN [Suspect]
     Active Substance: LORATADINE
     Indication: PRURITUS
     Dosage: 1 DF, QD
     Route: 048
     Dates: start: 2015, end: 2015

REACTIONS (5)
  - Drug ineffective [None]
  - Drug ineffective [None]
  - Drug ineffective [None]
  - Product use issue [None]
  - Product use issue [None]

NARRATIVE: CASE EVENT DATE: 2015
